FAERS Safety Report 8789155 (Version 1)
Quarter: 2012Q4

REPORT INFORMATION
  Report Type: Spontaneous
  Country: US (occurrence: None)
  Receive Date: 20120904
  Receipt Date: 20120904
  Transmission Date: 20130627
  Serious: Yes (Other)
  Sender: FDA-Public Use
  Company Number: 1402291

PATIENT

DRUGS (9)
  1. GEMCITABINE HYDROCHLORIDE [Suspect]
     Indication: SOLID TUMOR
  2. GEMCITABINE HYDROCHLORIDE [Suspect]
     Indication: SPINAL METASTASES
  3. GEMCITABINE HYDROCHLORIDE [Suspect]
     Indication: SOLID TUMOR
  4. GEMCITABINE HYDROCHLORIDE [Suspect]
     Indication: SPINAL METASTASES
  5. THERAPEUTICS RADIOPHARMACEUTICALS [Suspect]
     Indication: SOLID TUMOR
  6. THERAPEUTICS RADIOPHARMACEUTICALS [Suspect]
     Indication: SPINAL METASTASES
  7. THERAPEUTICS RADIOPHARMACEUTICALS [Suspect]
     Indication: SOLID TUMOR
  8. THERAPEUTICS RADIOPHARMACEUTICALS [Suspect]
     Indication: SPINAL METASTASES
  9. DEXAMETHASONE [Concomitant]

REACTIONS (3)
  - Oesophageal fistula [None]
  - Recall phenomenon [None]
  - Oesophageal stenosis [None]
